FAERS Safety Report 9712688 (Version 1)
Quarter: 2013Q4

REPORT INFORMATION
  Report Type: Spontaneous
  Country: US (occurrence: US)
  Receive Date: 20131126
  Receipt Date: 20131126
  Transmission Date: 20140711
  Serious: No
  Sender: FDA-Public Use
  Company Number: US-BRISTOL-MYERS SQUIBB COMPANY-18900688

PATIENT
  Age: 59 Year
  Sex: Female
  Weight: 95.24 kg

DRUGS (2)
  1. BYDUREON [Suspect]
     Indication: TYPE 2 DIABETES MELLITUS
     Dosage: 8 TIMES
     Dates: start: 20130324
  2. METFORMIN [Concomitant]

REACTIONS (6)
  - Injection site nodule [Unknown]
  - Injection site pruritus [Unknown]
  - Skin discolouration [Unknown]
  - Injection site extravasation [Unknown]
  - Drug administration error [Unknown]
  - Injection site pain [Unknown]
